FAERS Safety Report 15943372 (Version 1)
Quarter: 2019Q1

REPORT INFORMATION
  Report Type: Spontaneous
  Country: GB (occurrence: GB)
  Receive Date: 20190210
  Receipt Date: 20190210
  Transmission Date: 20190417
  Serious: Yes (Other)
  Sender: FDA-Public Use
  Company Number: PHHY2019GB029824

PATIENT
  Age: 58 Year
  Sex: Female

DRUGS (1)
  1. TOBRADEX [Suspect]
     Active Substance: DEXAMETHASONE\TOBRAMYCIN
     Indication: PROPHYLAXIS
     Route: 047

REACTIONS (6)
  - Keratitis fungal [Unknown]
  - Eye pain [Unknown]
  - Vision blurred [Unknown]
  - Photophobia [Unknown]
  - Candida infection [Unknown]
  - Ocular hyperaemia [Unknown]
